FAERS Safety Report 10675226 (Version 11)
Quarter: 2015Q4

REPORT INFORMATION
  Report Type: Report from Study
  Country: BE (occurrence: BE)
  Receive Date: 20141224
  Receipt Date: 20151215
  Transmission Date: 20160304
  Serious: Yes (Life-Threatening, Hospitalization, Other)
  Sender: FDA-Public Use
  Company Number: PHHO2014BE016863

PATIENT
  Age: 59 Year
  Sex: Male
  Weight: 72 kg

DRUGS (11)
  1. ACZ885 [Suspect]
     Active Substance: CANAKINUMAB
     Indication: CARDIOVASCULAR EVENT PROPHYLAXIS
     Dosage: 50 MG, B
     Route: 058
     Dates: start: 20130214, end: 20130808
  2. DUOVENT [Concomitant]
     Active Substance: FENOTEROL HYDROBROMIDE
     Indication: CHRONIC OBSTRUCTIVE PULMONARY DISEASE
     Dosage: 1.3 MG, 4-6X/D
     Route: 055
     Dates: start: 20010618, end: 20141107
  3. EUSAPRIM [Concomitant]
     Indication: INFECTION PROPHYLAXIS
     Dosage: 160, 3XWEEK
     Route: 065
     Dates: start: 20141108, end: 20151114
  4. BISOPROLOL [Concomitant]
     Active Substance: BISOPROLOL
     Indication: ISCHAEMIC HEART DISEASE PROPHYLAXIS
     Dosage: 2.5 MG, QD
     Route: 048
     Dates: start: 20140118, end: 20151114
  5. BURINEX [Concomitant]
     Active Substance: BUMETANIDE
     Indication: DIURETIC THERAPY
     Dosage: 5 MG, QD
     Route: 048
     Dates: start: 20141127
  6. FOSAMAX [Concomitant]
     Active Substance: ALENDRONATE SODIUM
     Indication: OSTEOPOROSIS
     Dosage: 70 MG, QW (FRIDAYS)
     Route: 065
     Dates: start: 20140514, end: 20151114
  7. SYMBICORT [Concomitant]
     Active Substance: BUDESONIDE\FORMOTEROL FUMARATE DIHYDRATE
     Indication: CHRONIC OBSTRUCTIVE PULMONARY DISEASE
     Dosage: 320 MG, BID
     Route: 055
     Dates: start: 20040810, end: 20141107
  8. OXYGEN. [Concomitant]
     Active Substance: OXYGEN
     Indication: CHRONIC OBSTRUCTIVE PULMONARY DISEASE
     Dosage: 2 L, 20/24 HRS
     Route: 055
     Dates: end: 20141107
  9. SPIRIVA [Concomitant]
     Active Substance: TIOTROPIUM BROMIDE MONOHYDRATE
     Indication: CHRONIC OBSTRUCTIVE PULMONARY DISEASE
     Dosage: 18 MG, QD
     Route: 048
     Dates: start: 20040610, end: 20141107
  10. LIPITOR [Concomitant]
     Active Substance: ATORVASTATIN CALCIUM
     Indication: HYPERCHOLESTEROLAEMIA
     Dosage: 50 MG, QD
     Route: 065
     Dates: start: 20121114, end: 20151114
  11. TAMSULOSINE [Concomitant]
     Active Substance: TAMSULOSIN HYDROCHLORIDE
     Indication: PROSTATISM
     Dosage: 0.4 MG, QD
     Route: 048
     Dates: start: 20141107, end: 20151114

REACTIONS (5)
  - Post procedural haemorrhage [Recovered/Resolved]
  - Pneumothorax [Unknown]
  - Lung adenocarcinoma [Not Recovered/Not Resolved]
  - Expiratory reserve volume decreased [Recovered/Resolved]
  - Cardio-respiratory arrest [Recovered/Resolved with Sequelae]

NARRATIVE: CASE EVENT DATE: 20141107
